FAERS Safety Report 4897080-6 (Version None)
Quarter: 2005Q4

REPORT INFORMATION
  Report Type: 
  Country: None (occurrence: None)
  Receive Date: 20051228
  Receipt Date: 20050815
  Transmission Date: 20060501
  Serious: Yes (Hospitalization)
  Sender: FDA-Public Use
  Company Number: USA0508105468

PATIENT
  Sex: Male

DRUGS (1)
  1. HUMULIN R [Suspect]

REACTIONS (2)
  - FAECAL INCONTINENCE [None]
  - HYPOGLYCAEMIA [None]
